FAERS Safety Report 6076829-3 (Version None)
Quarter: 2009Q1

REPORT INFORMATION
  Report Type: 
  Country: None (occurrence: None)
  Receive Date: 20090213
  Receipt Date: 20090205
  Transmission Date: 20090719
  Serious: Yes (Hospitalization)
  Sender: FDA-Public Use
  Company Number: FR-ASTRAZENECA-2008CG01362

PATIENT
  Age: 62 Year
  Sex: Male

DRUGS (4)
  1. CRESTOR [Suspect]
     Indication: DYSLIPIDAEMIA
     Route: 048
     Dates: start: 20070701
  2. KARDEGIC [Concomitant]
     Route: 048
  3. NOVONORM [Concomitant]
     Route: 048
  4. SECTRAL [Concomitant]
     Route: 048

REACTIONS (2)
  - HEPATITIS CHOLESTATIC [None]
  - PANCREATITIS ACUTE [None]
